FAERS Safety Report 5952002-1 (Version None)
Quarter: 2008Q4

REPORT INFORMATION
  Report Type: 
  Country: None (occurrence: None)
  Receive Date: 20081113
  Receipt Date: 20071109
  Transmission Date: 20090506
  Serious: No
  Sender: FDA-Public Use
  Company Number: A0693593A

PATIENT
  Age: 77 Year
  Sex: Male

DRUGS (2)
  1. COREG [Suspect]
     Dosage: 3.125MG TWICE PER DAY
     Route: 048
     Dates: end: 20061001
  2. HERBS [Concomitant]

REACTIONS (1)
  - ASTHENIA [None]
